FAERS Safety Report 12893242 (Version 1)
Quarter: 2016Q4

REPORT INFORMATION
  Report Type: Spontaneous
  Country: DE (occurrence: DE)
  Receive Date: 20161028
  Receipt Date: 20161028
  Transmission Date: 20170207
  Serious: Yes (Other)
  Sender: FDA-Public Use
  Company Number: PHHY2016DE148231

PATIENT
  Age: 71 Year
  Sex: Male

DRUGS (2)
  1. CARBOPLATIN. [Suspect]
     Active Substance: CARBOPLATIN
     Indication: METASTASES TO BONE
     Dosage: UNK
     Route: 065
     Dates: start: 201408
  2. PEMETREXED [Suspect]
     Active Substance: PEMETREXED
     Indication: METASTASES TO BONE
     Dosage: 500 MG/M2, UNK
     Route: 065
     Dates: start: 201408

REACTIONS (4)
  - Superior vena cava syndrome [Unknown]
  - Metastases to bone [Unknown]
  - Disease progression [Unknown]
  - Metastases to lung [Unknown]

NARRATIVE: CASE EVENT DATE: 201501
